FAERS Safety Report 11055402 (Version 1)
Quarter: 2015Q2

REPORT INFORMATION
  Report Type: Spontaneous
  Country: US (occurrence: US)
  Receive Date: 20150422
  Receipt Date: 20150422
  Transmission Date: 20150821
  Serious: Yes (Hospitalization)
  Sender: FDA-Public Use
  Company Number: US-JNJFOC-20150411238

PATIENT
  Sex: Male

DRUGS (6)
  1. INVEGA SUSTENNA [Suspect]
     Active Substance: PALIPERIDONE PALMITATE
     Indication: EMOTIONAL DISORDER
     Route: 030
  2. INVEGA SUSTENNA [Suspect]
     Active Substance: PALIPERIDONE PALMITATE
     Indication: EMOTIONAL DISORDER
     Route: 030
     Dates: start: 2012
  3. INVEGA SUSTENNA [Suspect]
     Active Substance: PALIPERIDONE PALMITATE
     Indication: FAMILY STRESS
     Route: 030
     Dates: start: 2012
  4. INVEGA SUSTENNA [Suspect]
     Active Substance: PALIPERIDONE PALMITATE
     Indication: FAMILY STRESS
     Route: 030
  5. INVEGA SUSTENNA [Suspect]
     Active Substance: PALIPERIDONE PALMITATE
     Indication: FAMILY STRESS
     Route: 030
  6. INVEGA SUSTENNA [Suspect]
     Active Substance: PALIPERIDONE PALMITATE
     Indication: EMOTIONAL DISORDER
     Route: 030

REACTIONS (10)
  - Scratch [Unknown]
  - Skin lesion [Unknown]
  - Pruritus [Unknown]
  - Muscle spasms [Unknown]
  - Adverse drug reaction [Unknown]
  - Urticaria [Unknown]
  - Product use issue [Unknown]
  - Hospitalisation [Not Recovered/Not Resolved]
  - Eye movement disorder [Unknown]
  - Scar [Unknown]
